FAERS Safety Report 17916479 (Version 1)
Quarter: 2020Q2

REPORT INFORMATION
  Report Type: Spontaneous
  Country: US (occurrence: US)
  Receive Date: 20200619
  Receipt Date: 20200619
  Transmission Date: 20200714
  Serious: No
  Sender: FDA-Public Use
  Company Number: None

PATIENT
  Age: 91 Year
  Sex: Male
  Weight: 72.41 kg

DRUGS (15)
  1. PROMACTA [Suspect]
     Active Substance: ELTROMBOPAG OLAMINE
     Indication: THROMBOCYTOPENIC PURPURA
     Route: 048
     Dates: start: 20191003, end: 20200619
  2. NIFEDIPINE. [Concomitant]
     Active Substance: NIFEDIPINE
  3. SIMVASTATIN. [Concomitant]
     Active Substance: SIMVASTATIN
  4. LASIX [Concomitant]
     Active Substance: FUROSEMIDE
  5. NITROGLYCERIN. [Concomitant]
     Active Substance: NITROGLYCERIN
  6. ALBUTEROL. [Concomitant]
     Active Substance: ALBUTEROL
  7. ELIQUIS [Concomitant]
     Active Substance: APIXABAN
  8. COLCRYS [Concomitant]
     Active Substance: COLCHICINE
  9. BUPROPION. [Concomitant]
     Active Substance: BUPROPION
  10. NITROFURANTOIN. [Concomitant]
     Active Substance: NITROFURANTOIN
  11. PANTOPRAZOLE [Concomitant]
     Active Substance: PANTOPRAZOLE
  12. OXYCODONE [Concomitant]
     Active Substance: OXYCODONE
  13. DOXAZOSIN [Concomitant]
     Active Substance: DOXAZOSIN MESYLATE
  14. BYSTOLIC [Concomitant]
     Active Substance: NEBIVOLOL HYDROCHLORIDE
  15. VALIUM [Concomitant]
     Active Substance: DIAZEPAM

REACTIONS (1)
  - Death [None]

NARRATIVE: CASE EVENT DATE: 20200619
